FAERS Safety Report 18625776 (Version 1)
Quarter: 2020Q4

REPORT INFORMATION
  Report Type: Other
  Country: US (occurrence: US)
  Receive Date: 20201217
  Receipt Date: 20201217
  Transmission Date: 20210114
  Serious: Yes (Other)
  Sender: FDA-Public Use
  Company Number: US-ROCHE-2729456

PATIENT

DRUGS (1)
  1. BEVACIZUMAB. [Suspect]
     Active Substance: BEVACIZUMAB
     Indication: HEREDITARY HAEMORRHAGIC TELANGIECTASIA
     Route: 065

REACTIONS (22)
  - Embolism venous [Unknown]
  - Fatigue [Unknown]
  - Blood alkaline phosphatase increased [Unknown]
  - Arthralgia [Unknown]
  - Cerebrovascular accident [Unknown]
  - Dyspnoea [Unknown]
  - Diarrhoea [Unknown]
  - Skin ulcer [Unknown]
  - Myalgia [Unknown]
  - Abdominal discomfort [Unknown]
  - Dizziness [Unknown]
  - Dysphonia [Unknown]
  - Myelosuppression [Unknown]
  - Oedema peripheral [Unknown]
  - Impaired healing [Unknown]
  - Staphylococcal skin infection [Unknown]
  - Headache [Unknown]
  - Rash [Unknown]
  - Abdominal pain [Unknown]
  - Epistaxis [Unknown]
  - Hypertension [Unknown]
  - Proteinuria [Unknown]
